FAERS Safety Report 7090944-7 (Version None)
Quarter: 2010Q4

REPORT INFORMATION
  Report Type: 
  Country: None (occurrence: None)
  Receive Date: 20101012
  Receipt Date: 20100726
  Transmission Date: 20110411
  Serious: Yes (Other)
  Sender: FDA-Public Use
  Company Number: 1000015338

PATIENT
  Age: 81 Year
  Sex: Male

DRUGS (4)
  1. LEXAPRO [Suspect]
     Indication: ANXIETY
     Dosage: 10 MG (10 MG, 1 IN 1 D), ORAL
     Route: 048
     Dates: start: 20100418
  2. ALLOPURINOL [Concomitant]
  3. ASPIRIN [Concomitant]
  4. POTASSIUM CHLORIDE [Concomitant]

REACTIONS (5)
  - AGGRESSION [None]
  - HOSTILITY [None]
  - MANIA [None]
  - RESTLESSNESS [None]
  - SUICIDAL IDEATION [None]
